FAERS Safety Report 24151427 (Version 1)
Quarter: 2024Q3

REPORT INFORMATION
  Report Type: Spontaneous
  Country: NL (occurrence: NL)
  Receive Date: 20240730
  Receipt Date: 20240730
  Transmission Date: 20241016
  Serious: Yes (Other)
  Sender: ACCORD
  Company Number: None

PATIENT
  Age: 82 Year
  Sex: Female
  Weight: 70 kg

DRUGS (7)
  1. SOLIFENACIN SUCCINATE [Suspect]
     Active Substance: SOLIFENACIN SUCCINATE
     Indication: Urinary incontinence
     Dosage: THE INDICATED DOSE IS/WAS PER DAY, INITIALLY 10 MG
     Dates: start: 20210301
  2. NEBIVOLOL [Concomitant]
     Active Substance: NEBIVOLOL
     Dosage: TABLET, 5 MG (MILLIGRAM)
  3. ESOMEPRAZOLE [Concomitant]
     Active Substance: ESOMEPRAZOLE
     Dosage: GASTRO-RESISTANT CAPSULE, 20 MG (MILLIGRAM)
  4. NITROFURANTOIN [Concomitant]
     Active Substance: NITROFURANTOIN
     Dosage: CAPSULE, 50 MG (MILLIGRAM)
  5. APIXABAN [Concomitant]
     Active Substance: APIXABAN
     Dosage: 2X PER DAY TABLET OF 2.5 MG
  6. CITALOPRAM [Concomitant]
     Active Substance: CITALOPRAM\CITALOPRAM HYDROBROMIDE
     Dosage: COATED TABLET, 10 MG (MILLIGRAM)
  7. SOLIFENACIN SUCCINATE [Suspect]
     Active Substance: SOLIFENACIN SUCCINATE
     Indication: Urinary incontinence
     Dosage: THEN 5 MG PER DAY
     Dates: start: 20221215, end: 20240301

REACTIONS (2)
  - Dementia [Recovered/Resolved]
  - Disorientation [Recovered/Resolved]
